FAERS Safety Report 6222453-9 (Version None)
Quarter: 2009Q2

REPORT INFORMATION
  Report Type: 
  Country: None (occurrence: None)
  Receive Date: 20090608
  Receipt Date: 20090525
  Transmission Date: 20091009
  Serious: Yes (Other)
  Sender: FDA-Public Use
  Company Number: US-GENENTECH-284007

PATIENT
  Age: 24 Month
  Sex: Female

DRUGS (1)
  1. AVASTIN [Suspect]
     Indication: VASCULAR ANOMALY
     Dosage: 15 MG/KG, Q2W
     Route: 065

REACTIONS (3)
  - ANAEMIA [None]
  - EPISTAXIS [None]
  - GASTROINTESTINAL HAEMORRHAGE [None]
